FAERS Safety Report 4929100-4 (Version None)
Quarter: 2006Q1

REPORT INFORMATION
  Report Type: 
  Country: None (occurrence: None)
  Receive Date: 20060228
  Receipt Date: 20060228
  Transmission Date: 20060701
  Serious: Yes (Death)
  Sender: FDA-Public Use
  Company Number: None

PATIENT
  Sex: Male
  Weight: 92.5338 kg

DRUGS (2)
  1. PACLITAXEL [Suspect]
     Indication: SMALL CELL LUNG CANCER STAGE UNSPECIFIED
     Dosage: 75 MG/M2 2 WEEKS ON 1 WEEK IV
     Route: 042
     Dates: start: 20051229, end: 20060224
  2. IRINOTECAN HCL [Suspect]
     Indication: SMALL CELL LUNG CANCER STAGE UNSPECIFIED
     Dosage: 50 MG/M2 2 WEEKS ON 1 WEEK IV
     Route: 042
     Dates: start: 20051229, end: 20060224

REACTIONS (2)
  - FALL [None]
  - MYOCARDIAL INFARCTION [None]
